FAERS Safety Report 13053253 (Version 1)
Quarter: 2016Q4

REPORT INFORMATION
  Report Type: Spontaneous
  Country: US (occurrence: US)
  Receive Date: 20161222
  Receipt Date: 20161222
  Transmission Date: 20170207
  Serious: No
  Sender: FDA-Public Use
  Company Number: US-LEO PHARMA-245221

PATIENT
  Age: 40 Year
  Sex: Female

DRUGS (1)
  1. PICATO [Suspect]
     Active Substance: INGENOL MEBUTATE
     Indication: ACTINIC KERATOSIS
     Route: 061

REACTIONS (4)
  - Application site exfoliation [Not Recovered/Not Resolved]
  - Application site dryness [Recovering/Resolving]
  - Application site erythema [Recovering/Resolving]
  - Application site ulcer [Recovered/Resolved]
